FAERS Safety Report 8961333 (Version 2)
Quarter: 2013Q1

REPORT INFORMATION
  Report Type: Spontaneous
  Country: US (occurrence: US)
  Receive Date: 20121212
  Receipt Date: 20130116
  Transmission Date: 20140127
  Serious: Yes (Hospitalization)
  Sender: FDA-Public Use
  Company Number: US-B.I. PHARMACEUTICALS,INC./RIDGEFIELD-2012-BI-02557BP

PATIENT
  Age: 80 Year
  Sex: Male
  Weight: 101.6 kg

DRUGS (9)
  1. COMBIVENT [Suspect]
     Indication: DYSPNOEA
     Route: 055
     Dates: start: 201104
  2. ZETIA [Concomitant]
     Dosage: 10 MG
     Route: 048
  3. LISINOPRIL [Concomitant]
     Dosage: 10 MG
     Route: 048
  4. SOTALOL [Concomitant]
     Indication: ARRHYTHMIA
     Dosage: 80 MG
     Route: 048
  5. XARELTO [Concomitant]
     Indication: ATRIAL FIBRILLATION
     Dosage: 20 MG
     Route: 048
     Dates: start: 20120131
  6. POTASSIUM CHLORIDE [Concomitant]
     Dosage: 40 MEQ
     Route: 048
  7. FUROSEMIDE [Concomitant]
     Indication: DIURETIC THERAPY
     Dosage: 60 MG
     Route: 048
  8. CRESTOR [Concomitant]
     Route: 048
  9. ASPIRIN [Concomitant]
     Dosage: 325 MG
     Route: 048

REACTIONS (2)
  - Dyspnoea [Recovered/Resolved]
  - Drug ineffective [Recovered/Resolved]
